FAERS Safety Report 7281233-6 (Version None)
Quarter: 2011Q1

REPORT INFORMATION
  Report Type: 
  Country: None (occurrence: None)
  Receive Date: 20110208
  Receipt Date: 20110131
  Transmission Date: 20110831
  Serious: Yes (Death)
  Sender: FDA-Public Use
  Company Number: CHPA2011US02073

PATIENT
  Age: 54 Year
  Sex: Male

DRUGS (1)
  1. ACETAMINOPHEN [Suspect]
     Route: 048

REACTIONS (13)
  - HYPOTENSION [None]
  - METABOLIC ACIDOSIS [None]
  - PNEUMONIA [None]
  - UNRESPONSIVE TO STIMULI [None]
  - RESPIRATORY FAILURE [None]
  - VOMITING [None]
  - DISSEMINATED INTRAVASCULAR COAGULATION [None]
  - COMPLETED SUICIDE [None]
  - ASPARTATE AMINOTRANSFERASE INCREASED [None]
  - ALANINE AMINOTRANSFERASE INCREASED [None]
  - LETHARGY [None]
  - HEPATIC NECROSIS [None]
  - SEPSIS [None]
